FAERS Safety Report 17521327 (Version 1)
Quarter: 2020Q1

REPORT INFORMATION
  Report Type: Spontaneous
  Country: US (occurrence: US)
  Receive Date: 20200310
  Receipt Date: 20200310
  Transmission Date: 20200409
  Serious: Yes (Hospitalization)
  Sender: FDA-Public Use
  Company Number: None

PATIENT
  Age: 80 Year
  Sex: Female

DRUGS (19)
  1. PROCRIT [Suspect]
     Active Substance: ERYTHROPOIETIN
     Indication: ANAEMIA
     Dosage: ?          OTHER FREQUENCY:ONCE A MONTH;?
     Route: 058
     Dates: start: 20200115
  2. ADMELOG [Concomitant]
     Active Substance: INSULIN LISPRO
  3. BASAGLAR [Concomitant]
     Active Substance: INSULIN GLARGINE
  4. LISINOPRIL. [Concomitant]
     Active Substance: LISINOPRIL
  5. PANTOPRAZOLE [Concomitant]
     Active Substance: PANTOPRAZOLE
  6. ATORVASTATIN [Concomitant]
     Active Substance: ATORVASTATIN
  7. FUROSEMIDE. [Concomitant]
     Active Substance: FUROSEMIDE
  8. ISOSORBIDE MONO [Concomitant]
  9. CREON [Concomitant]
     Active Substance: PANCRELIPASE AMYLASE\PANCRELIPASE LIPASE\PANCRELIPASE PROTEASE
  10. PHENYTOIN. [Concomitant]
     Active Substance: PHENYTOIN
  11. VIT D [Concomitant]
     Active Substance: VITAMIN D NOS
  12. CALCITRIOL. [Concomitant]
     Active Substance: CALCITRIOL
  13. GABAPENTIN. [Concomitant]
     Active Substance: GABAPENTIN
  14. METOLAZONE. [Concomitant]
     Active Substance: METOLAZONE
  15. SODIUM BICARB [Concomitant]
     Active Substance: SODIUM BICARBONATE
  16. FEROSUL [Concomitant]
     Active Substance: FERROUS SULFATE
  17. LEVETIRACETAM. [Concomitant]
     Active Substance: LEVETIRACETAM
  18. NIFEDIPINE. [Concomitant]
     Active Substance: NIFEDIPINE
  19. SUCRALFATE. [Concomitant]
     Active Substance: SUCRALFATE

REACTIONS (2)
  - Infection [None]
  - Dialysis [None]

NARRATIVE: CASE EVENT DATE: 20200302
